FAERS Safety Report 12947187 (Version 1)
Quarter: 2016Q4

REPORT INFORMATION
  Report Type: Spontaneous
  Country: US (occurrence: US)
  Receive Date: 20161116
  Receipt Date: 20161116
  Transmission Date: 20170207
  Serious: No
  Sender: FDA-Public Use
  Company Number: None

PATIENT
  Age: 84 Year
  Sex: Female
  Weight: 63.56 kg

DRUGS (19)
  1. RX LANSOPRAZOLE [Suspect]
     Active Substance: LANSOPRAZOLE
     Indication: GASTROOESOPHAGEAL REFLUX DISEASE
     Dosage: AM. BY MOUTH
     Route: 048
     Dates: start: 20140113, end: 20161102
  2. FOLIC ACID. [Concomitant]
     Active Substance: FOLIC ACID
  3. TRAZODONE HYDROCHLORIDE. [Concomitant]
     Active Substance: TRAZODONE HYDROCHLORIDE
  4. PRESERVISION/LUTEIN [Concomitant]
  5. XANAX [Concomitant]
     Active Substance: ALPRAZOLAM
  6. FLEXERIL [Concomitant]
     Active Substance: CYCLOBENZAPRINE HYDROCHLORIDE
  7. VICODIN [Concomitant]
     Active Substance: ACETAMINOPHEN\HYDROCODONE BITARTRATE
  8. CALCIUM + D [Concomitant]
     Active Substance: CALCIUM\VITAMIN D
  9. VERAPAMIL HCL [Concomitant]
     Active Substance: VERAPAMIL HYDROCHLORIDE
  10. VAGIFEM [Concomitant]
     Active Substance: ESTRADIOL
  11. MYRBETRIQ [Concomitant]
     Active Substance: MIRABEGRON
  12. LOTRISONE [Concomitant]
     Active Substance: BETAMETHASONE DIPROPIONATE\CLOTRIMAZOLE
  13. FENTANYL. [Concomitant]
     Active Substance: FENTANYL
  14. GABAPENTIN. [Concomitant]
     Active Substance: GABAPENTIN
  15. SPIRONOLACTONE. [Concomitant]
     Active Substance: SPIRONOLACTONE
  16. VITAMIN D3 [Concomitant]
     Active Substance: CHOLECALCIFEROL
  17. ADVIL [Concomitant]
     Active Substance: IBUPROFEN
  18. VITAMIN B12 [Concomitant]
     Active Substance: CYANOCOBALAMIN
  19. RECLAST [Concomitant]
     Active Substance: ZOLEDRONIC ACID

REACTIONS (4)
  - Diarrhoea [None]
  - Vomiting [None]
  - Hyperhidrosis [None]
  - Abdominal pain [None]

NARRATIVE: CASE EVENT DATE: 20160911
